FAERS Safety Report 25022762 (Version 1)
Quarter: 2025Q1

REPORT INFORMATION
  Report Type: Spontaneous
  Country: US (occurrence: US)
  Receive Date: 20250228
  Receipt Date: 20250228
  Transmission Date: 20250409
  Serious: Yes (Hospitalization, Other)
  Sender: MANKIND PHARMA
  Company Number: US-MankindUS-000334

PATIENT
  Age: 9 Decade
  Sex: Female

DRUGS (2)
  1. RANOLAZINE HYDROCHLORIDE [Suspect]
     Active Substance: RANOLAZINE HYDROCHLORIDE
     Indication: Angina pectoris
     Dosage: 500MG TWO TIMES PER DAY
  2. RANOLAZINE HYDROCHLORIDE [Suspect]
     Active Substance: RANOLAZINE HYDROCHLORIDE
     Indication: Angina pectoris
     Dosage: 1000 MG TWO TIMES PER DAY

REACTIONS (2)
  - Seizure [Recovered/Resolved]
  - Toxicity to various agents [Recovered/Resolved]
